FAERS Safety Report 7151425-5 (Version None)
Quarter: 2010Q4

REPORT INFORMATION
  Report Type: 
  Country: None (occurrence: None)
  Receive Date: 20101123
  Receipt Date: 20101112
  Transmission Date: 20110411
  Serious: Yes (Life-Threatening, Hospitalization)
  Sender: FDA-Public Use
  Company Number: TIF2010A00131

PATIENT
  Age: 63 Year
  Sex: Male

DRUGS (5)
  1. LANSOPRAZOLE [Suspect]
     Indication: PRODUCT USED FOR UNKNOWN INDICATION
     Dosage: 15 MG (15 MG, 1 IN 1 D)
  2. CIPRALEX (ESCITALOPRAM) [Suspect]
     Indication: DEPRESSION
     Dosage: 15 MG (10 MG), ORAL
     Route: 048
     Dates: start: 20100901, end: 20101004
  3. OLANZAPINE [Suspect]
     Indication: DEPRESSION
     Dosage: 10 MG (10 MG, 1 IN 1 D), ORAL
     Route: 048
     Dates: start: 20100801, end: 20101004
  4. BISOPROLOL (BISOPROLOL) [Suspect]
     Dosage: 1.25 MG (1.25 MG)
  5. LORAZEPAM [Concomitant]

REACTIONS (5)
  - DEPRESSED LEVEL OF CONSCIOUSNESS [None]
  - DRUG ADMINISTRATION ERROR [None]
  - MUSCLE RIGIDITY [None]
  - RHABDOMYOLYSIS [None]
  - TREMOR [None]
